FAERS Safety Report 17760998 (Version 2)
Quarter: 2020Q2

REPORT INFORMATION
  Report Type: Spontaneous
  Country: US (occurrence: US)
  Receive Date: 20200508
  Receipt Date: 20200519
  Transmission Date: 20200714
  Serious: No
  Sender: FDA-Public Use
  Company Number: US-PFIZER INC-2020185451

PATIENT
  Age: 67 Year
  Sex: Male

DRUGS (1)
  1. INLYTA [Suspect]
     Active Substance: AXITINIB
     Indication: RENAL CANCER
     Dosage: 5 MG, 2X/DAY
     Dates: start: 20200430

REACTIONS (3)
  - Aphonia [Unknown]
  - Hiccups [Unknown]
  - Dysphonia [Unknown]

NARRATIVE: CASE EVENT DATE: 202005
